FAERS Safety Report 21703384 (Version 2)
Quarter: 2023Q1

REPORT INFORMATION
  Report Type: Spontaneous
  Country: FR (occurrence: FR)
  Receive Date: 20221209
  Receipt Date: 20230111
  Transmission Date: 20230417
  Serious: No
  Sender: FDA-Public Use
  Company Number: FR-BRISTOL-MYERS SQUIBB COMPANY-2022-148741

PATIENT
  Age: 45 Year
  Weight: 100 kg

DRUGS (1)
  1. BELATACEPT [Suspect]
     Active Substance: BELATACEPT
     Indication: Product used for unknown indication
     Dosage: DOSE: 500MG; FREQ: X 5 FORTNIGHTLY DOSES THEN MONTHLY DOSES THEREAFTER.
     Dates: start: 202211

REACTIONS (1)
  - No adverse event [Unknown]
